FAERS Safety Report 6410831-4 (Version None)
Quarter: 2009Q4

REPORT INFORMATION
  Report Type: 
  Country: None (occurrence: None)
  Receive Date: 20091022
  Receipt Date: 20091009
  Transmission Date: 20100525
  Serious: Yes (Hospitalization)
  Sender: FDA-Public Use
  Company Number: DE-GENENTECH-291503

PATIENT
  Sex: Female

DRUGS (5)
  1. BEVACIZUMAB [Suspect]
     Indication: BREAST CANCER
     Dosage: 15 MG/KG, UNK
     Route: 042
     Dates: start: 20090908
  2. CAPECITABINE [Suspect]
     Indication: BREAST CANCER
     Dosage: 1000 MG/M2, BID
     Route: 048
     Dates: start: 20090908
  3. VINORELBINE [Suspect]
     Indication: BREAST CANCER
     Dosage: 25 MG/M2, UNK
     Route: 042
     Dates: start: 20090908
  4. LEVOTHYROXINE SODIUM [Concomitant]
     Indication: DRUG USE FOR UNKNOWN INDICATION
     Dosage: UNK
  5. OLANZAPINE [Concomitant]
     Indication: DRUG USE FOR UNKNOWN INDICATION
     Dosage: UNK

REACTIONS (2)
  - PNEUMONIA [None]
  - PYREXIA [None]
